FAERS Safety Report 4705017-5 (Version None)
Quarter: 2005Q3

REPORT INFORMATION
  Report Type: 
  Country: None (occurrence: None)
  Receive Date: 20050701
  Receipt Date: 20050620
  Transmission Date: 20060218
  Serious: Yes (Other)
  Sender: FDA-Public Use
  Company Number: SE-JNJFOC-20050403220

PATIENT
  Age: 61 Year
  Sex: Female

DRUGS (5)
  1. REMICADE [Suspect]
     Route: 042
  2. REMICADE [Suspect]
     Route: 042
  3. IMUREL [Concomitant]
  4. ASACOL [Concomitant]
     Route: 065
  5. PREDNISOLONE [Concomitant]
     Route: 065

REACTIONS (1)
  - PNEUMOCYSTIS JIROVECI INFECTION [None]
